FAERS Safety Report 23248699 (Version 1)
Quarter: 2023Q4

REPORT INFORMATION
  Report Type: Spontaneous
  Country: US (occurrence: US)
  Receive Date: 20231201
  Receipt Date: 20231201
  Transmission Date: 20240109
  Serious: Yes (Life-Threatening, Hospitalization, Other)
  Sender: FDA-Public Use
  Company Number: None

PATIENT
  Age: 55 Year
  Sex: Male

DRUGS (11)
  1. DAPAGLIFLOZIN [Suspect]
     Active Substance: DAPAGLIFLOZIN
     Indication: Glucose tolerance impaired
     Dosage: 5 MG/D
     Route: 065
  2. DAPAGLIFLOZIN [Suspect]
     Active Substance: DAPAGLIFLOZIN
     Dosage: 10 MG/D (INCREASED DOSE)
     Route: 065
  3. METHYLPREDNISOLONE [Suspect]
     Active Substance: METHYLPREDNISOLONE
     Indication: Immunosuppressant drug therapy
     Dosage: 500 MILLIGRAM (INTRAOPERATIVE) (TOTAL)
     Route: 042
  4. MYCOPHENOLATE MOFETIL [Suspect]
     Active Substance: MYCOPHENOLATE MOFETIL
     Indication: Immunosuppressant drug therapy
     Dosage: 1000 MILLIGRAM, BID
     Route: 048
  5. TACROLIMUS [Suspect]
     Active Substance: TACROLIMUS
     Indication: Product used for unknown indication
     Dosage: 0.5 MILLIGRAM, BID
     Route: 048
  6. CEFTRIAXONE [Concomitant]
     Active Substance: CEFTRIAXONE\CEFTRIAXONE SODIUM
     Indication: Antibiotic prophylaxis
     Dosage: 1 GRAM
     Route: 042
  7. DOPAMINE [Concomitant]
     Active Substance: DOPAMINE HYDROCHLORIDE
     Indication: Cardiac failure acute
     Dosage: 3 MICROGRAM/KILOGRAM (EVERY 1 MINUTE)
     Route: 065
  8. EPINEPHRINE [Concomitant]
     Active Substance: EPINEPHRINE
     Indication: Cardiac failure acute
     Dosage: 0.05 MICROGRAM/KILOGRAM (EVERY 1 MINUTE)
     Route: 065
  9. MILRINONE [Concomitant]
     Active Substance: MILRINONE
     Indication: Cardiac failure acute
     Dosage: 0.3 MICROGRAM/KILOGRAM (EVERY 1 MINE
     Route: 065
  10. MILRINONE [Concomitant]
     Active Substance: MILRINONE
     Dosage: 0.2 MICROGRAM/KILOGRAM (EVERY 1 MINUTE)
     Route: 065
  11. VANCOMYCIN [Concomitant]
     Active Substance: VANCOMYCIN
     Indication: Antibiotic prophylaxis
     Dosage: 1 GRAM
     Route: 042

REACTIONS (9)
  - Euglycaemic diabetic ketoacidosis [Recovered/Resolved]
  - Shock [Recovered/Resolved]
  - Acute kidney injury [Unknown]
  - Metabolic acidosis [Recovered/Resolved]
  - Clostridium difficile infection [Unknown]
  - Lactic acidosis [Recovered/Resolved]
  - Respiratory alkalosis [Recovered/Resolved]
  - Posterior reversible encephalopathy syndrome [Unknown]
  - Seizure [Unknown]
